FAERS Safety Report 8336491-3 (Version None)
Quarter: 2012Q2

REPORT INFORMATION
  Report Type: 
  Country: None (occurrence: None)
  Receive Date: 20120504
  Receipt Date: 20120426
  Transmission Date: 20120825
  Serious: Yes (Hospitalization, Other)
  Sender: FDA-Public Use
  Company Number: US-BAYER-2011-121491

PATIENT
  Age: 17 Year
  Sex: Female
  Weight: 54.422 kg

DRUGS (7)
  1. ALBUTEROL [Concomitant]
     Dosage: UNK UNK, PRN
     Route: 048
     Dates: start: 20100422
  2. DROSPIRENONE AND ETHINYL ESTRADIOL [Suspect]
     Dosage: UNK
     Dates: start: 20040101, end: 20100401
  3. YASMIN [Suspect]
     Dosage: UNK
     Dates: start: 20040101, end: 20100401
  4. ADDERALL 5 [Concomitant]
     Dosage: 10 MG, UNK
     Route: 048
  5. ONDANSETRON [Concomitant]
     Dosage: 4 MG, UNK
     Route: 048
     Dates: start: 20100323
  6. VICODIN [Concomitant]
     Dosage: UNK
     Route: 048
     Dates: start: 20100323, end: 20100422
  7. FLUOXETINE [Concomitant]
     Dosage: 10 MG, UNK
     Route: 048
     Dates: start: 20100109, end: 20100422

REACTIONS (7)
  - GALLBLADDER INJURY [None]
  - ANHEDONIA [None]
  - CHOLECYSTITIS CHRONIC [None]
  - EMOTIONAL DISTRESS [None]
  - ANXIETY [None]
  - PAIN [None]
  - GENERAL PHYSICAL HEALTH DETERIORATION [None]
